FAERS Safety Report 5929282-1 (Version None)
Quarter: 2008Q4

REPORT INFORMATION
  Report Type: 
  Country: None (occurrence: None)
  Receive Date: 20081023
  Receipt Date: 20081023
  Transmission Date: 20090506
  Serious: No
  Sender: FDA-Public Use
  Company Number: None

PATIENT
  Age: 72 Year
  Sex: Male
  Weight: 93 kg

DRUGS (1)
  1. HEPARIN SODIUM [Suspect]
     Indication: ANGIOGRAM
     Dosage: 7000 UNITS ONE TIME SQ
     Route: 058
     Dates: start: 20080929, end: 20080929

REACTIONS (2)
  - PRODUCT QUALITY ISSUE [None]
  - THERAPEUTIC PRODUCT INEFFECTIVE [None]
